FAERS Safety Report 5305942-0 (Version None)
Quarter: 2007Q2

REPORT INFORMATION
  Report Type: 
  Country: None (occurrence: None)
  Receive Date: 20070424
  Receipt Date: 20070416
  Transmission Date: 20071010
  Serious: Yes (Other)
  Sender: FDA-Public Use
  Company Number: US-JNJFOC-20070403417

PATIENT
  Age: 64 Year
  Sex: Female
  Weight: 99.79 kg

DRUGS (19)
  1. TYLENOL (CAPLET) [Suspect]
     Route: 048
  2. TYLENOL (CAPLET) [Suspect]
     Indication: PAIN
     Dosage: PRN
     Route: 048
  3. DETROL [Concomitant]
  4. VERAPAMIL [Concomitant]
  5. PLAVIX [Concomitant]
  6. ISOSORBIDE [Concomitant]
  7. LASIX [Concomitant]
  8. LOVASTATIN [Concomitant]
  9. NEXIUM [Concomitant]
  10. SYNTHROID [Concomitant]
  11. ALLEGRA [Concomitant]
  12. POTASSIUM ACETATE [Concomitant]
  13. GLUCOSAMINE CHONDROITIN [Concomitant]
  14. HUMALOG [Concomitant]
  15. LANTUS [Concomitant]
  16. QUINIDINE SULFATE [Concomitant]
  17. BENTYL [Concomitant]
  18. TOLBUTAMIDE [Concomitant]
  19. ROBAXIN [Concomitant]
     Indication: PAIN

REACTIONS (2)
  - GASTRIC HAEMORRHAGE [None]
  - INTENTIONAL DRUG MISUSE [None]
